FAERS Safety Report 10143562 (Version 1)
Quarter: 2014Q2

REPORT INFORMATION
  Report Type: Report from Study
  Country: GB (occurrence: GB)
  Receive Date: 20140430
  Receipt Date: 20140430
  Transmission Date: 20141212
  Serious: Yes (Hospitalization)
  Sender: FDA-Public Use
  Company Number: GB-JNJFOC-20140417783

PATIENT
  Age: 55 Year
  Sex: Male
  Weight: 80 kg

DRUGS (3)
  1. TMC435350 [Suspect]
     Indication: HEPATITIS C
     Route: 048
     Dates: start: 20140401, end: 20140423
  2. PEGYLATED INTERFERON [Suspect]
     Indication: HEPATITIS C
     Route: 058
     Dates: start: 20140401, end: 20140423
  3. RIBAVIRIN [Suspect]
     Indication: HEPATITIS C
     Route: 048
     Dates: start: 20140401, end: 20140423

REACTIONS (3)
  - Confusional state [Recovering/Resolving]
  - Hepatic function abnormal [Unknown]
  - Rash [Unknown]
